FAERS Safety Report 16985047 (Version 1)
Quarter: 2019Q4

REPORT INFORMATION
  Report Type: Spontaneous
  Country: US (occurrence: US)
  Receive Date: 20191031
  Receipt Date: 20191031
  Transmission Date: 20200122
  Serious: No
  Sender: FDA-Public Use
  Company Number: None

PATIENT
  Age: 7 Year
  Sex: Male

DRUGS (3)
  1. INTUNIV 2 MG TABLET [Concomitant]
     Dates: start: 20181116
  2. ADDERALL 10 MG TABLET [Concomitant]
     Dates: start: 20170703
  3. DEXTROAMPHET SACCHARAT, AMPHET ASPARTATE, DEXTROAMPHET SULFATE AND AMPHET SULFAT [Suspect]
     Active Substance: AMPHETAMINE ASPARTATE\AMPHETAMINE SULFATE\DEXTROAMPHETAMINE SACCHARATE\DEXTROAMPHETAMINE SULFATE
     Indication: ATTENTION DEFICIT/HYPERACTIVITY DISORDER
     Route: 048
     Dates: start: 20191003, end: 20191016

REACTIONS (3)
  - Therapeutic product effect incomplete [None]
  - Product substitution issue [None]
  - Psychomotor hyperactivity [None]

NARRATIVE: CASE EVENT DATE: 20191016
